FAERS Safety Report 19735757 (Version 4)
Quarter: 2022Q4

REPORT INFORMATION
  Report Type: Report from Study
  Country: US (occurrence: US)
  Receive Date: 20210823
  Receipt Date: 20221223
  Transmission Date: 20230113
  Serious: No
  Sender: FDA-Public Use
  Company Number: US-IPSEN BIOPHARMACEUTICALS, INC.-2021-20205

PATIENT
  Age: 61 Year
  Sex: Female

DRUGS (9)
  1. SOMATULINE DEPOT [Suspect]
     Active Substance: LANREOTIDE ACETATE
     Indication: Acromegaly
     Dosage: 120 MG, ONE SYRINGE.
     Route: 058
  2. SOMATULINE DEPOT [Suspect]
     Active Substance: LANREOTIDE ACETATE
     Indication: Gigantism
     Dosage: 60 MG/0.2 ML, EVERY 6 WEEKS, SUBCUTANEOUS
     Route: 058
     Dates: start: 202105
  3. VALSARTAN [Concomitant]
     Active Substance: VALSARTAN
  4. PANTOPRAZOLE [Concomitant]
     Active Substance: PANTOPRAZOLE
  5. DESMOPRESSIN [Concomitant]
     Active Substance: DESMOPRESSIN
  6. AMLODIPINE [Concomitant]
     Active Substance: AMLODIPINE BESYLATE
  7. FLAXSEED [Concomitant]
     Active Substance: FLAX SEED
  8. HYDROCHLOROTHIAZIDE [Concomitant]
     Active Substance: HYDROCHLOROTHIAZIDE
  9. BENEFIBER [Concomitant]
     Active Substance: STARCH, WHEAT

REACTIONS (8)
  - Splinter haemorrhages [Recovering/Resolving]
  - Abdominal discomfort [Recovering/Resolving]
  - Nausea [Recovering/Resolving]
  - Abdominal pain upper [Recovering/Resolving]
  - Fatigue [Unknown]
  - Change of bowel habit [Unknown]
  - Decreased appetite [Unknown]
  - Off label use [Unknown]

NARRATIVE: CASE EVENT DATE: 20210501
